FAERS Safety Report 4385056-7 (Version None)
Quarter: 2004Q2

REPORT INFORMATION
  Report Type: 
  Country: None (occurrence: None)
  Receive Date: 20040625
  Receipt Date: 20040614
  Transmission Date: 20050107
  Serious: Yes (Other)
  Sender: FDA-Public Use
  Company Number: SE-GLAXOSMITHKLINE-B0336686A

PATIENT
  Age: 50 Year
  Sex: Male

DRUGS (4)
  1. LAMICTAL [Suspect]
     Indication: NECK PAIN
     Dosage: 25MG PER DAY
     Route: 048
     Dates: start: 20030605, end: 20030715
  2. STILNOCT [Concomitant]
     Dosage: 10MG PER DAY
  3. ACETAMINOPHEN [Concomitant]
     Dosage: 500MG PER DAY
  4. NOBLIGAN [Concomitant]
     Dosage: 100MG PER DAY

REACTIONS (5)
  - AFFECT LABILITY [None]
  - AGGRESSION [None]
  - FAMILY STRESS [None]
  - IRRITABILITY [None]
  - PERSONALITY DISORDER [None]
